FAERS Safety Report 10361259 (Version 2)
Quarter: 2014Q3

REPORT INFORMATION
  Report Type: Spontaneous
  Country: US (occurrence: US)
  Receive Date: 20140804
  Receipt Date: 20140825
  Transmission Date: 20150326
  Serious: No
  Sender: FDA-Public Use
  Company Number: US-PFIZER INC-2014215740

PATIENT
  Sex: Female

DRUGS (3)
  1. NEURONTIN [Suspect]
     Active Substance: GABAPENTIN
     Dosage: UNK
  2. LYRICA [Suspect]
     Active Substance: PREGABALIN
     Dosage: 75 MG, 2X/DAY
  3. LYRICA [Suspect]
     Active Substance: PREGABALIN
     Dosage: 100 MG, 1X/DAY

REACTIONS (3)
  - Drug prescribing error [Unknown]
  - Drug administration error [Unknown]
  - Somnolence [Unknown]
